FAERS Safety Report 11447394 (Version 1)
Quarter: 2015Q3

REPORT INFORMATION
  Report Type: Spontaneous
  Country: US (occurrence: US)
  Receive Date: 20150902
  Receipt Date: 20150902
  Transmission Date: 20151125
  Serious: No
  Sender: FDA-Public Use
  Company Number: US-JNJFOC-20150801952

PATIENT
  Age: 52 Year
  Sex: Female
  Weight: 97.52 kg

DRUGS (1)
  1. KETOCONAZOLE. [Suspect]
     Active Substance: KETOCONAZOLE
     Indication: PRURITUS
     Dosage: 1 APPLICATION/ CREAM
     Route: 061
     Dates: start: 2015

REACTIONS (2)
  - Product use issue [Unknown]
  - Eye irritation [Not Recovered/Not Resolved]

NARRATIVE: CASE EVENT DATE: 20150804
